FAERS Safety Report 25678994 (Version 4)
Quarter: 2025Q3

REPORT INFORMATION
  Report Type: Spontaneous
  Country: JP (occurrence: JP)
  Receive Date: 20250814
  Receipt Date: 20250916
  Transmission Date: 20251021
  Serious: Yes (Hospitalization, Other)
  Sender: ASTELLAS
  Company Number: JP-ASTELLAS-2025-AER-042941

PATIENT
  Age: 74 Year
  Sex: Female

DRUGS (5)
  1. XOSPATA [Suspect]
     Active Substance: GILTERITINIB
     Indication: Product used for unknown indication
     Route: 048
  2. XOSPATA [Suspect]
     Active Substance: GILTERITINIB
     Route: 048
     Dates: start: 20250819
  3. XOSPATA [Suspect]
     Active Substance: GILTERITINIB
     Route: 048
  4. ACLARUBICIN HYDROCHLORIDE [Concomitant]
     Active Substance: ACLARUBICIN HYDROCHLORIDE
     Indication: Product used for unknown indication
     Route: 065
  5. CYTARABINE [Concomitant]
     Active Substance: CYTARABINE
     Indication: Product used for unknown indication
     Route: 065

REACTIONS (2)
  - Platelet count decreased [Not Recovered/Not Resolved]
  - White blood cell count decreased [Not Recovered/Not Resolved]
